FAERS Safety Report 21079260 (Version 2)
Quarter: 2022Q4

REPORT INFORMATION
  Report Type: Spontaneous
  Country: GR (occurrence: GR)
  Receive Date: 20220714
  Receipt Date: 20221122
  Transmission Date: 20230113
  Serious: Yes (Hospitalization, Other)
  Sender: FDA-Public Use
  Company Number: GR-002147023-NVSC2022GR146487

PATIENT
  Age: 66 Year
  Sex: Male

DRUGS (1)
  1. AMOXICILLIN\CLAVULANIC ACID [Suspect]
     Active Substance: AMOXICILLIN\CLAVULANIC ACID
     Indication: Skin infection
     Dosage: UNK
     Route: 065

REACTIONS (15)
  - Jaundice [Recovered/Resolved]
  - Chromaturia [Recovered/Resolved]
  - Ocular icterus [Recovered/Resolved]
  - Faeces discoloured [Recovered/Resolved]
  - Renal impairment [Recovering/Resolving]
  - Hepatitis cholestatic [Recovered/Resolved]
  - Cholestasis [Recovered/Resolved]
  - Acute kidney injury [Recovered/Resolved]
  - Jaundice cholestatic [Recovered/Resolved]
  - Cholestatic liver injury [Recovered/Resolved]
  - Hyperbilirubinaemia [Recovered/Resolved]
  - Hepatic function abnormal [Recovered/Resolved]
  - Hepatic enzyme increased [Recovered/Resolved]
  - Polyuria [Recovered/Resolved]
  - Condition aggravated [Recovered/Resolved]
